FAERS Safety Report 14590314 (Version 1)
Quarter: 2018Q1

REPORT INFORMATION
  Report Type: Spontaneous
  Country: US (occurrence: US)
  Receive Date: 20180301
  Receipt Date: 20180301
  Transmission Date: 20180509
  Serious: No
  Sender: FDA-Public Use
  Company Number: None

PATIENT
  Age: 64 Year
  Sex: Female

DRUGS (3)
  1. TRACLEER [Suspect]
     Active Substance: BOSENTAN
     Indication: CONNECTIVE TISSUE DISORDER
     Route: 048
     Dates: start: 20141122
  2. TRACLEER [Suspect]
     Active Substance: BOSENTAN
     Indication: HEART DISEASE CONGENITAL
     Route: 048
     Dates: start: 20141122
  3. TRACLEER [Suspect]
     Active Substance: BOSENTAN
     Indication: PULMONARY ARTERIAL HYPERTENSION
     Route: 048
     Dates: start: 20141122

REACTIONS (9)
  - Rhinorrhoea [None]
  - Pyrexia [None]
  - Nasal congestion [None]
  - Pain [None]
  - Headache [None]
  - Diarrhoea [None]
  - Cough [None]
  - Dyspnoea [None]
  - Respiratory syncytial virus infection [None]

NARRATIVE: CASE EVENT DATE: 20180228
